FAERS Safety Report 25734145 (Version 1)
Quarter: 2025Q3

REPORT INFORMATION
  Report Type: Spontaneous
  Country: CA (occurrence: None)
  Receive Date: 20250828
  Receipt Date: 20250828
  Transmission Date: 20251021
  Serious: Yes (Other)
  Sender: ORION
  Company Number: CA-PFIZER INC-202500169204

PATIENT
  Age: 58 Year
  Sex: Female

DRUGS (5)
  1. METHOTREXATE [Suspect]
     Active Substance: METHOTREXATE
     Indication: Product used for unknown indication
  2. CELEBREX [Concomitant]
     Active Substance: CELECOXIB
     Dates: start: 202209
  3. FOLIC ACID [Concomitant]
     Active Substance: FOLIC ACID
  4. NAPROXEN [Concomitant]
     Active Substance: NAPROXEN
  5. PREDNISONE [Concomitant]
     Active Substance: PREDNISONE

REACTIONS (2)
  - Crohn^s disease [Unknown]
  - Ankylosing spondylitis [Unknown]
